FAERS Safety Report 4931694-X (Version None)
Quarter: 2006Q1

REPORT INFORMATION
  Report Type: 
  Country: None (occurrence: None)
  Receive Date: 20060303
  Receipt Date: 20060120
  Transmission Date: 20060701
  Serious: No
  Sender: FDA-Public Use
  Company Number: US-BRISTOL-MYERS SQUIBB COMPANY-13255674

PATIENT
  Age: 50 Year
  Sex: Female
  Weight: 51 kg

DRUGS (13)
  1. ERBITUX [Suspect]
     Indication: RECTAL CANCER METASTATIC
     Dosage: DOSE HELD 18-JAN-2006.
     Route: 042
     Dates: start: 20060103, end: 20060103
  2. DEXAMETHASONE SODIUM PHOSPHATE [Concomitant]
     Indication: PREMEDICATION
     Route: 042
     Dates: start: 20060103
  3. DIPHENHYDRAMINE [Concomitant]
     Indication: PREMEDICATION
     Route: 042
     Dates: start: 20060103
  4. TYLENOL (CAPLET) [Concomitant]
     Indication: PREMEDICATION
     Route: 048
     Dates: start: 20060103
  5. AMITRIPTYLINE HCL [Concomitant]
  6. CALCIUM GLUCONATE [Concomitant]
  7. FOLIC ACID [Concomitant]
  8. IRINOTECAN HCL [Concomitant]
  9. MAGNESIUM [Concomitant]
  10. PYRIDOXINE HCL [Concomitant]
  11. TAMOXIFEN CITRATE [Concomitant]
  12. VITAMIN E [Concomitant]
  13. WARFARIN [Concomitant]

REACTIONS (1)
  - RASH [None]
